FAERS Safety Report 9719390 (Version 1)
Quarter: 2013Q4

REPORT INFORMATION
  Report Type: Spontaneous
  Country: CA (occurrence: CA)
  Receive Date: 20131128
  Receipt Date: 20131128
  Transmission Date: 20140711
  Serious: Yes (Other)
  Sender: FDA-Public Use
  Company Number: CA-ROCHE-1309531

PATIENT
  Age: 57 Year
  Sex: Female

DRUGS (17)
  1. MYCOPHENOLATE MOFETIL [Suspect]
     Indication: PRODUCT USED FOR UNKNOWN INDICATION
     Route: 065
  2. REMICADE [Suspect]
     Indication: PRODUCT USED FOR UNKNOWN INDICATION
     Route: 042
  3. REMICADE [Suspect]
     Dosage: THERAPY DURATION: 3.0 MONTHS
     Route: 051
  4. REMICADE [Suspect]
     Route: 051
  5. REMICADE [Suspect]
     Route: 042
  6. REMICADE [Suspect]
     Route: 042
  7. REMICADE [Suspect]
     Route: 042
  8. REMICADE [Suspect]
     Dosage: THERAPY DURATION: 3.0 MONTHS
     Route: 042
  9. REMICADE [Suspect]
     Route: 065
  10. REMICADE [Suspect]
     Route: 042
  11. TACROLIMUS [Suspect]
     Indication: PRODUCT USED FOR UNKNOWN INDICATION
     Route: 065
  12. HUMIRA [Suspect]
     Indication: PRODUCT USED FOR UNKNOWN INDICATION
     Route: 058
  13. HUMIRA [Suspect]
     Dosage: THERAPY DURATION 3.5 MONTH
     Route: 058
  14. HUMIRA [Suspect]
     Route: 058
  15. HUMIRA [Suspect]
     Route: 058
  16. PREDNISONE [Suspect]
     Indication: PRODUCT USED FOR UNKNOWN INDICATION
     Route: 065
  17. PREDNISONE [Suspect]
     Dosage: THERAPY DURATION 7 YEAR
     Route: 065

REACTIONS (5)
  - Colectomy [Unknown]
  - Colorectal adenocarcinoma [Unknown]
  - Dysplasia [Unknown]
  - Drug ineffective [Unknown]
  - Off label use [Unknown]
